FAERS Safety Report 7987856-0 (Version None)
Quarter: 2011Q4

REPORT INFORMATION
  Report Type: 
  Country: None (occurrence: None)
  Receive Date: 20111216
  Receipt Date: 20110511
  Transmission Date: 20120403
  Serious: No
  Sender: FDA-Public Use
  Company Number: US-BRISTOL-MYERS SQUIBB COMPANY-15736911

PATIENT
  Age: 52 Year
  Sex: Female
  Weight: 73 kg

DRUGS (4)
  1. ABILIFY [Suspect]
     Indication: DEPRESSION
  2. METHADONE HCL [Concomitant]
  3. CYMBALTA [Concomitant]
  4. KLONOPIN [Concomitant]

REACTIONS (4)
  - HYPERHIDROSIS [None]
  - WEIGHT INCREASED [None]
  - ERYTHEMA [None]
  - CHILLS [None]
